FAERS Safety Report 4916666-3 (Version None)
Quarter: 2006Q1

REPORT INFORMATION
  Report Type: 
  Country: None (occurrence: None)
  Receive Date: 20060219
  Receipt Date: 20060219
  Transmission Date: 20060701
  Serious: Yes (Hospitalization)
  Sender: FDA-Public Use
  Company Number: None

PATIENT
  Age: 78 Year
  Sex: Male
  Weight: 92 kg

DRUGS (2)
  1. NITROGLYCERIN [Suspect]
     Indication: ANGINA PECTORIS
     Dosage: PRN LAST DOSE
     Dates: start: 20051010
  2. NITROGLYCERIN [Suspect]
     Indication: CORONARY ARTERY DISEASE
     Dosage: PRN LAST DOSE
     Dates: start: 20051010

REACTIONS (3)
  - BLOOD PRESSURE DECREASED [None]
  - COUGH [None]
  - SYNCOPE VASOVAGAL [None]
